FAERS Safety Report 24266757 (Version 1)
Quarter: 2024Q3

REPORT INFORMATION
  Report Type: Spontaneous
  Country: GB (occurrence: GB)
  Receive Date: 20240830
  Receipt Date: 20240830
  Transmission Date: 20241017
  Serious: Yes (Other)
  Sender: AUROBINDO
  Company Number: GB-MHRA-EMIS-5916-5f049a0d-c8fb-4a21-88c9-e037e04eb013

PATIENT
  Age: 85 Year
  Sex: Female
  Weight: 49 kg

DRUGS (7)
  1. SOLIFENACIN [Suspect]
     Active Substance: SOLIFENACIN
     Indication: Product used for unknown indication
     Dosage: 1 DOSAGE FORM, ONCE A DAY
     Route: 065
     Dates: start: 20240807
  2. Spikevax XBB.1.5 [Concomitant]
     Indication: Product used for unknown indication
     Dosage: 0.5 MILLILITER
     Route: 030
     Dates: start: 20240508, end: 20240508
  3. BUTYLSCOPOLAMINE BROMIDE [Concomitant]
     Active Substance: BUTYLSCOPOLAMINE BROMIDE
     Indication: Product used for unknown indication
     Dosage: 2 DOSAGE FORM, FOUR TIMES/DAY
     Route: 065
     Dates: start: 20240617
  4. HYDROCORTISONE [Concomitant]
     Active Substance: HYDROCORTISONE\HYDROCORTISONE ACETATE
     Indication: Product used for unknown indication
     Dosage: 15 GRAM, TWO TIMES A DAY (APPLY THINLY TWICE A DAY AS DIRECTED15 G)
     Route: 065
     Dates: start: 20240617
  5. Cetraben [Concomitant]
     Indication: Product used for unknown indication
     Dosage: 500 GRAM (USE 3-4 TIMES A DAY AND AS A SOAP SUBSTITUTE500 G)
     Route: 065
     Dates: start: 20240712
  6. NITROFURANTOIN [Concomitant]
     Active Substance: NITROFURANTOIN
     Indication: Product used for unknown indication
     Dosage: 1 DOSAGE FORM, TWO TIMES A DAY
     Route: 065
     Dates: start: 20240726
  7. SOLARAZE [Concomitant]
     Active Substance: DICLOFENAC SODIUM
     Indication: Actinic keratosis
     Dosage: 50 GRAM, TWO TIMES A DAY (TO BE USED TWICE A DAY FOR 60-90 DAYS50G)
     Route: 065
     Dates: start: 20240726

REACTIONS (4)
  - Dry mouth [Recovered/Resolved]
  - Paraesthesia oral [Recovered/Resolved]
  - Palatal swelling [Recovered/Resolved]
  - Stomatitis [Recovered/Resolved]

NARRATIVE: CASE EVENT DATE: 20240807
